FAERS Safety Report 10658322 (Version 1)
Quarter: 2014Q4

REPORT INFORMATION
  Report Type: Spontaneous
  Country: US (occurrence: None)
  Receive Date: 20141205
  Receipt Date: 20141205
  Transmission Date: 20150529
  Serious: Yes (Other)
  Sender: FDA-Public Use
  Company Number: USA-2014111545

PATIENT
  Age: 67 Year
  Sex: Male
  Weight: 82.56 kg

DRUGS (17)
  1. BIAXIN [Concomitant]
     Active Substance: CLARITHROMYCIN
  2. LORAZEPAM (LORAZEPAM) [Concomitant]
     Active Substance: LORAZEPAM
  3. TUMS [Concomitant]
     Active Substance: CALCIUM CARBONATE
  4. WARFARIN (WARFARIN) [Concomitant]
     Active Substance: WARFARIN
  5. EFFEXOR (VENLAFLAXINE HYDROCHLORIDE) [Concomitant]
  6. FLOMAX [Concomitant]
     Active Substance: TAMSULOSIN HYDROCHLORIDE
  7. OMEPRAXOLE (OMEPRAZOLE) [Concomitant]
  8. TYLENOL [Concomitant]
     Active Substance: ACETAMINOPHEN
  9. FISH OIL (FISH OIL) [Concomitant]
     Active Substance: FISH OIL
  10. POMALYST [Suspect]
     Active Substance: POMALIDOMIDE
     Indication: PLASMA CELL MYELOMA
     Dosage: 4 MG, 21 IN 21 D
     Route: 048
     Dates: start: 20141010
  11. LIPITOR [Concomitant]
     Active Substance: ATORVASTATIN CALCIUM
  12. VITAMIN C [Concomitant]
     Active Substance: ASCORBIC ACID
  13. GABAPENTIN (GABAPENTIN) [Concomitant]
     Active Substance: GABAPENTIN
  14. DEXAMETHASONE (DEXAMETHASONE) [Concomitant]
     Active Substance: DEXAMETHASONE
  15. ACYCLOVIR (ACICLOVIR) [Concomitant]
  16. VITAMIN D (VITAMIN D NOS) [Concomitant]
  17. FLOMAX [Concomitant]
     Active Substance: TAMSULOSIN HYDROCHLORIDE

REACTIONS (3)
  - Platelet count decreased [None]
  - Respiratory tract congestion [None]
  - Wheezing [None]

NARRATIVE: CASE EVENT DATE: 20141030
